FAERS Safety Report 16333891 (Version 4)
Quarter: 2019Q3

REPORT INFORMATION
  Report Type: Spontaneous
  Country: JP (occurrence: JP)
  Receive Date: 20190520
  Receipt Date: 20190802
  Transmission Date: 20191004
  Serious: Yes (Hospitalization, Other)
  Sender: FDA-Public Use
  Company Number: JP-009507513-1903JPN000790J

PATIENT
  Age: 78 Year
  Sex: Male
  Weight: 46 kg

DRUGS (5)
  1. ADONA [Concomitant]
     Indication: HAEMOPTYSIS
     Dosage: 30 MILLIGRAM, TID
     Route: 048
     Dates: start: 20181220
  2. TRANSAMIN [Concomitant]
     Active Substance: TRANEXAMIC ACID
     Indication: HAEMOPTYSIS
     Dosage: 250 MILLIGRAM, TID
     Route: 048
     Dates: start: 20181220
  3. PEMETREXED DISODIUM [Suspect]
     Active Substance: PEMETREXED DISODIUM
     Indication: NON-SMALL CELL LUNG CANCER
     Dosage: 550 MILLIGRAM, EVERY 4 WEEKS
     Route: 041
     Dates: start: 20190214, end: 20190314
  4. CARBOPLATIN. [Suspect]
     Active Substance: CARBOPLATIN
     Indication: NON-SMALL CELL LUNG CANCER
     Dosage: 5 AUC, EVERY 4 WEEKS
     Route: 041
     Dates: start: 20190214, end: 20190314
  5. KEYTRUDA [Suspect]
     Active Substance: PEMBROLIZUMAB
     Indication: NON-SMALL CELL LUNG CANCER
     Dosage: 200 MILLIGRAM, EVERY 4 WEEKS
     Route: 041
     Dates: start: 20190214, end: 20190314

REACTIONS (4)
  - Interstitial lung disease [Recovering/Resolving]
  - Inappropriate schedule of product administration [Unknown]
  - Malaise [Unknown]
  - Anaemia [Recovering/Resolving]

NARRATIVE: CASE EVENT DATE: 201902
